FAERS Safety Report 9465097 (Version 2)
Quarter: 2013Q3

REPORT INFORMATION
  Report Type: Spontaneous
  Country: US (occurrence: US)
  Receive Date: 20130819
  Receipt Date: 20130909
  Transmission Date: 20140515
  Serious: Yes (Other)
  Sender: FDA-Public Use
  Company Number: CHPA2013US012934

PATIENT
  Age: 88 Year
  Sex: Male

DRUGS (4)
  1. TRANSDERM SCOP [Suspect]
     Indication: BALANCE DISORDER
     Dosage: 1 DF, Q72H
     Route: 062
     Dates: start: 2012
  2. INSULIN [Concomitant]
     Indication: DIABETES MELLITUS
     Dosage: UNK, BID
  3. ANTIHYPERTENSIVES [Concomitant]
     Indication: HYPERTENSION
     Dosage: UNK, UNK
  4. OXYGEN [Concomitant]
     Dosage: UNK, UNK

REACTIONS (6)
  - Drug dependence [Not Recovered/Not Resolved]
  - Visual impairment [Not Recovered/Not Resolved]
  - Fall [Recovered/Resolved]
  - Disease recurrence [Recovered/Resolved]
  - Intraocular pressure increased [Not Recovered/Not Resolved]
  - Off label use [Unknown]
